FAERS Safety Report 4990924-9 (Version None)
Quarter: 2006Q2

REPORT INFORMATION
  Report Type: 
  Country: None (occurrence: None)
  Receive Date: 20060503
  Receipt Date: 20051020
  Transmission Date: 20061013
  Serious: Yes (Hospitalization, Disabling, Other)
  Sender: FDA-Public Use
  Company Number: US-MERCK-0510USA08365

PATIENT
  Age: 58 Year
  Sex: Female
  Weight: 66 kg

DRUGS (8)
  1. VIOXX [Suspect]
     Indication: ARTHRITIS
     Route: 048
     Dates: start: 19991119, end: 19991130
  2. VIOXX [Suspect]
     Indication: PAIN
     Route: 048
     Dates: start: 19991119, end: 19991130
  3. ULTRAM [Concomitant]
     Route: 065
  4. VASOTEC [Concomitant]
     Route: 065
  5. LASIX [Concomitant]
     Route: 065
  6. ASPIRIN [Concomitant]
     Route: 065
  7. PREMARIN [Concomitant]
     Route: 065
  8. BENTYL [Concomitant]
     Route: 065

REACTIONS (19)
  - ARTHROPATHY [None]
  - BUNDLE BRANCH BLOCK LEFT [None]
  - CARDIAC DISORDER [None]
  - CARDIAC FAILURE [None]
  - CARDIAC FAILURE CONGESTIVE [None]
  - CEREBROVASCULAR ACCIDENT [None]
  - CHILLS [None]
  - CONDITION AGGRAVATED [None]
  - COUGH [None]
  - DILATATION VENTRICULAR [None]
  - EMOTIONAL DISORDER [None]
  - FIBROCYSTIC BREAST DISEASE [None]
  - MENTAL DISORDER [None]
  - MITRAL VALVE INCOMPETENCE [None]
  - MUSCULOSKELETAL DISORDER [None]
  - REFLUX GASTRITIS [None]
  - SINUS TACHYCARDIA [None]
  - TRICUSPID VALVE INCOMPETENCE [None]
  - VENTRICULAR EXTRASYSTOLES [None]
